FAERS Safety Report 15706779 (Version 11)
Quarter: 2019Q4

REPORT INFORMATION
  Report Type: Report from Study
  Country: US (occurrence: US)
  Receive Date: 20181210
  Receipt Date: 20191111
  Transmission Date: 20200122
  Serious: Yes (Hospitalization)
  Sender: FDA-Public Use
  Company Number: US-ACTELION-A-NJ2018-167231

PATIENT
  Age: 61 Year
  Sex: Female
  Weight: 56.69 kg

DRUGS (7)
  1. VELETRI [Suspect]
     Active Substance: EPOPROSTENOL
     Dosage: 41 NG/KG, PER MIN
     Route: 042
  2. VELETRI [Suspect]
     Active Substance: EPOPROSTENOL
     Dosage: 41 NG/KG, PER MIN
     Route: 042
  3. LETAIRIS [Concomitant]
     Active Substance: AMBRISENTAN
  4. ADCIRCA [Concomitant]
     Active Substance: TADALAFIL
  5. COUMADIN [Concomitant]
     Active Substance: WARFARIN SODIUM
  6. VELETRI [Suspect]
     Active Substance: EPOPROSTENOL
     Indication: PULMONARY ARTERIAL HYPERTENSION
     Dosage: 41 NG/KG, PER MIN
     Route: 042
  7. DILTIAZEM. [Concomitant]
     Active Substance: DILTIAZEM

REACTIONS (17)
  - Hospitalisation [Unknown]
  - Palpitations [Unknown]
  - Bacteraemia [Unknown]
  - Device issue [Unknown]
  - Catheter site pain [Unknown]
  - Device related infection [Unknown]
  - Pneumonia [Unknown]
  - Chest wall abscess [Unknown]
  - Blood potassium decreased [Unknown]
  - Chest pain [Unknown]
  - Catheter site erythema [Unknown]
  - Dyspnoea exertional [Unknown]
  - Catheter placement [Unknown]
  - Thrombosis [Unknown]
  - Hospice care [Unknown]
  - Catheter management [Unknown]
  - Dyspnoea [Unknown]

NARRATIVE: CASE EVENT DATE: 201803
